FAERS Safety Report 6782594-4 (Version None)
Quarter: 2010Q2

REPORT INFORMATION
  Report Type: 
  Country: None (occurrence: None)
  Receive Date: 20100621
  Receipt Date: 20100611
  Transmission Date: 20101027
  Serious: Yes (Death)
  Sender: FDA-Public Use
  Company Number: US-WATSON-2010-07883

PATIENT
  Sex: Male

DRUGS (1)
  1. FENTANYL-75 [Suspect]
     Indication: RIB FRACTURE
     Dosage: 1 PATCH, SINGLE
     Route: 062
     Dates: start: 20091105, end: 20091101

REACTIONS (4)
  - DRUG LEVEL INCREASED [None]
  - DRUG PRESCRIBING ERROR [None]
  - NARCOTIC INTOXICATION [None]
  - UNRESPONSIVE TO STIMULI [None]
